FAERS Safety Report 13257384 (Version 3)
Quarter: 2017Q1

REPORT INFORMATION
  Report Type: Spontaneous
  Country: CH (occurrence: CH)
  Receive Date: 20170221
  Receipt Date: 20170320
  Transmission Date: 20170428
  Serious: Yes (Hospitalization)
  Sender: FDA-Public Use
  Company Number: CH-GE HEALTHCARE LIFE SCIENCES-OMPQ-PR-1702S-0348

PATIENT

DRUGS (7)
  1. ACCUPAQUE [Suspect]
     Active Substance: IOHEXOL
     Indication: CARDIAC STRESS TEST ABNORMAL
  2. ACCUPAQUE [Suspect]
     Active Substance: IOHEXOL
     Indication: FAMILIAL RISK FACTOR
  3. PLAQUENIL                          /00072602/ [Concomitant]
     Active Substance: HYDROXYCHLOROQUINE DIPHOSPHATE
     Dosage: 200 MG, BID
  4. ACCUPAQUE [Suspect]
     Active Substance: IOHEXOL
     Indication: CHEST PAIN
     Dosage: 100 ML, SINGLE
     Route: 013
     Dates: start: 20170205, end: 20170205
  5. PERINDOPRIL [Concomitant]
     Active Substance: PERINDOPRIL
     Dosage: 5 UNK, UNK
  6. BETABLOCK [Concomitant]
     Dosage: 2.5 MG, BID
  7. CRESTAR [Concomitant]
     Dosage: 5 MG, UNK

REACTIONS (2)
  - Mucous membrane disorder [Recovering/Resolving]
  - Hypersensitivity [Recovering/Resolving]

NARRATIVE: CASE EVENT DATE: 20170205
